FAERS Safety Report 4867079-4 (Version None)
Quarter: 2005Q4

REPORT INFORMATION
  Report Type: 
  Country: None (occurrence: None)
  Receive Date: 20051222
  Receipt Date: 20051209
  Transmission Date: 20060501
  Serious: Yes (Hospitalization)
  Sender: FDA-Public Use
  Company Number: DSA_27389_2005

PATIENT
  Age: 81 Year
  Sex: Male

DRUGS (6)
  1. TEMESTA [Suspect]
     Dosage: 70 MG ONCE PO
     Route: 048
  2. ALCOHOL [Concomitant]
  3. APROVEL [Concomitant]
  4. LASILIX [Concomitant]
  5. KARDEGIC [Concomitant]
  6. LEVOTHYROXINE SODIUM [Concomitant]

REACTIONS (5)
  - ACCIDENTAL OVERDOSE [None]
  - LEUKOCYTOSIS [None]
  - LEUKOPENIA [None]
  - NEUTROPENIA [None]
  - NEUTROPHILIA [None]
